FAERS Safety Report 21228786 (Version 1)
Quarter: 2022Q3

REPORT INFORMATION
  Report Type: Spontaneous
  Country: US (occurrence: US)
  Receive Date: 20220818
  Receipt Date: 20220818
  Transmission Date: 20221026
  Serious: No
  Sender: FDA-Public Use
  Company Number: US-PFIZER INC-202201065930

PATIENT
  Sex: Female

DRUGS (6)
  1. GABAPENTIN [Suspect]
     Active Substance: GABAPENTIN
     Indication: Trigeminal neuralgia
     Dosage: 100 TO 300 MG, AS NEEDED (1-3 CAPSULES AT BEDTIME DEPENDING ON PAIN)
  2. TRAMADOL [Concomitant]
     Active Substance: TRAMADOL
     Dosage: 50 MG, 4X/DAY (EVERY 6 HOURS)
  3. TYLENOL [Concomitant]
     Active Substance: ACETAMINOPHEN
     Dosage: UNK
  4. MOTRIN [Concomitant]
     Active Substance: IBUPROFEN
     Dosage: 1000 MG (2 TABLETS)
  5. TEGRETOL [Concomitant]
     Active Substance: CARBAMAZEPINE
     Dosage: 100 MG, 4X/DAY
  6. PAXLOVID [Concomitant]
     Active Substance: NIRMATRELVIR\RITONAVIR
     Indication: COVID-19 treatment
     Dosage: 3 DF, 2X/DAY
     Dates: start: 20220730, end: 20220803

REACTIONS (2)
  - Off label use [Unknown]
  - Drug ineffective for unapproved indication [Unknown]
